FAERS Safety Report 9698249 (Version 1)
Quarter: 2013Q4

REPORT INFORMATION
  Report Type: Spontaneous
  Country: US (occurrence: US)
  Receive Date: 20131120
  Receipt Date: 20131120
  Transmission Date: 20140711
  Serious: No
  Sender: FDA-Public Use
  Company Number: US-ENDO PHARMACEUTICALS INC.-OXYB20120010

PATIENT
  Age: 66 Year
  Sex: Female

DRUGS (1)
  1. OXYBUTYNIN CHLORIDE [Suspect]
     Indication: MICTURITION URGENCY
     Route: 048
     Dates: start: 201205

REACTIONS (2)
  - Laryngitis [Recovered/Resolved]
  - Diarrhoea [Not Recovered/Not Resolved]
